FAERS Safety Report 12726342 (Version 3)
Quarter: 2017Q2

REPORT INFORMATION
  Report Type: Report from Study
  Country: US (occurrence: US)
  Receive Date: 20160908
  Receipt Date: 20170609
  Transmission Date: 20170830
  Serious: Yes (Hospitalization)
  Sender: FDA-Public Use
  Company Number: US-SA-2016SA161918

PATIENT
  Age: 71 Year
  Sex: Female

DRUGS (2)
  1. ANTIFUNGALS [Suspect]
     Active Substance: UNSPECIFIED INGREDIENT
     Indication: PNEUMONITIS
     Route: 065
  2. LEMTRADA [Suspect]
     Active Substance: ALEMTUZUMAB
     Indication: MULTIPLE SCLEROSIS
     Route: 041
     Dates: start: 20160613, end: 20160617

REACTIONS (8)
  - Cough [Not Recovered/Not Resolved]
  - Hypersensitivity [Unknown]
  - White blood cell count abnormal [Unknown]
  - Urine output decreased [Recovered/Resolved]
  - Anaemia [Unknown]
  - Pyrexia [Recovered/Resolved]
  - Pneumonitis [Unknown]
  - Blood count abnormal [Recovered/Resolved]

NARRATIVE: CASE EVENT DATE: 201608
